FAERS Safety Report 16664358 (Version 2)
Quarter: 2019Q3

REPORT INFORMATION
  Report Type: Report from Study
  Country: None (occurrence: US)
  Receive Date: 20190802
  Receipt Date: 20190808
  Transmission Date: 20191004
  Serious: No
  Sender: FDA-Public Use
  Company Number: US-ABBVIE-19P-163-2874165-00

PATIENT
  Age: 23 Year
  Sex: Female
  Weight: 52.21 kg

DRUGS (1)
  1. ORILISSA [Suspect]
     Active Substance: ELAGOLIX SODIUM
     Indication: ENDOMETRIOSIS
     Route: 048
     Dates: start: 201905

REACTIONS (5)
  - Back pain [Recovered/Resolved]
  - Menorrhagia [Recovered/Resolved]
  - Dyspareunia [Not Recovered/Not Resolved]
  - Vaginal haemorrhage [Recovered/Resolved]
  - Dysmenorrhoea [Not Recovered/Not Resolved]

NARRATIVE: CASE EVENT DATE: 20190726
